FAERS Safety Report 17956021 (Version 2)
Quarter: 2020Q3

REPORT INFORMATION
  Report Type: Spontaneous
  Country: US (occurrence: US)
  Receive Date: 20200629
  Receipt Date: 20200803
  Transmission Date: 20201103
  Serious: No
  Sender: FDA-Public Use
  Company Number: US-PFIZER INC-2020064680

PATIENT
  Age: 63 Year
  Sex: Female

DRUGS (2)
  1. SUTENT [Suspect]
     Active Substance: SUNITINIB MALATE
     Dosage: 37.5 MG, CYCLIC (TAKE 1 CAPSULE (37.5MG) BY MOUTH DAILY. (4 WEEKS ON/ 2 WEEKS OFF^)
     Route: 048
  2. SUTENT [Suspect]
     Active Substance: SUNITINIB MALATE
     Indication: RENAL CANCER
     Dosage: 37.5 MG, CYCLIC (TAKE 1 CAPSULE PO (ORAL) DAILY 2 WEEKS ON, THEN 1 WEEK OFF)
     Route: 048

REACTIONS (2)
  - Skin exfoliation [Unknown]
  - Pain in extremity [Unknown]
